FAERS Safety Report 10595075 (Version 1)
Quarter: 2014Q4

REPORT INFORMATION
  Report Type: Spontaneous
  Country: DE (occurrence: None)
  Receive Date: 20141106
  Receipt Date: 20141106
  Transmission Date: 20150529
  Serious: Yes (Hospitalization)
  Sender: FDA-Public Use
  Company Number: GAM-370-14-DE

PATIENT
  Age: 68 Year
  Sex: Female

DRUGS (4)
  1. SOLIFENACIN [Concomitant]
     Active Substance: SOLIFENACIN
  2. ALLOPURINOL. [Concomitant]
     Active Substance: ALLOPURINOL
  3. IODIDE [Concomitant]
  4. OCTAGAM IMMUNE GLOBULIN (HUMAN) [Suspect]
     Active Substance: HUMAN IMMUNOGLOBULIN G
     Indication: SECONDARY IMMUNODEFICIENCY
     Dosage: (1X 1/TOTAL),  (NOT OTHERWISE SPECIFIED)
     Route: 042
     Dates: start: 20140909, end: 20140909

REACTIONS (5)
  - Brain stem infarction [None]
  - Splenic infarction [None]
  - Headache [None]
  - Abdominal pain [None]
  - Chills [None]

NARRATIVE: CASE EVENT DATE: 20140918
